FAERS Safety Report 6867310-X (Version None)
Quarter: 2010Q3

REPORT INFORMATION
  Report Type: 
  Country: None (occurrence: None)
  Receive Date: 20100721
  Receipt Date: 20100721
  Transmission Date: 20110219
  Serious: No
  Sender: FDA-Public Use
  Company Number: None

PATIENT
  Age: 57 Year
  Sex: Female
  Weight: 72.5755 kg

DRUGS (2)
  1. BONIVA [Suspect]
     Indication: BONE DENSITOMETRY
     Dosage: ONE TABLET MONTHLY
     Dates: start: 20100301
  2. BONIVA [Suspect]
     Indication: BONE DENSITOMETRY
     Dosage: ONE TABLET MONTHLY
     Dates: start: 20100401

REACTIONS (4)
  - ABDOMINAL PAIN UPPER [None]
  - GASTROINTESTINAL PAIN [None]
  - MUSCLE SPASMS [None]
  - PAIN IN JAW [None]
